FAERS Safety Report 8794284 (Version 1)
Quarter: 2012Q4

REPORT INFORMATION
  Report Type: 
  Country: VE (occurrence: VE)
  Receive Date: 20120917
  Receipt Date: 20120917
  Transmission Date: 20130627
  Serious: Yes (Other)
  Sender: FDA-Public Use
  Company Number: PHHY2012VE080246

PATIENT
  Age: 74 None
  Sex: Female

DRUGS (5)
  1. ACLASTA [Suspect]
     Indication: OSTEOPOROSIS
     Dosage: 5 mg, annually
     Route: 042
     Dates: start: 20110830
  2. DAFLON (DIOSMIN/HESPERIDIN) [Concomitant]
     Indication: CARDIOVASCULAR INSUFFICIENCY
     Dosage: 1 DF, QD
     Route: 048
     Dates: start: 2009
  3. CALCIUM [Concomitant]
     Indication: OSTEOPOROSIS
     Dosage: 1 DF, QD
     Route: 048
  4. OMEGA 3 FISH OIL [Concomitant]
     Dosage: 1 DF, QD
     Route: 048
  5. REMINALET [Concomitant]
     Indication: HYPERTENSION
     Dosage: 1 DF, QD
     Dates: start: 1992

REACTIONS (5)
  - Fall [Recovering/Resolving]
  - Rib fracture [Recovering/Resolving]
  - Pain [Recovering/Resolving]
  - Feeling abnormal [Recovering/Resolving]
  - Influenza [Recovering/Resolving]
